FAERS Safety Report 10665636 (Version 1)
Quarter: 2014Q4

REPORT INFORMATION
  Report Type: Spontaneous
  Country: US (occurrence: US)
  Receive Date: 20141219
  Receipt Date: 20141219
  Transmission Date: 20150529
  Serious: No
  Sender: FDA-Public Use
  Company Number: US-SHIONOGI, INC-2014000936

PATIENT
  Age: 59 Year
  Sex: Female

DRUGS (3)
  1. OSPHENA [Suspect]
     Active Substance: OSPEMIFENE
     Indication: DYSPAREUNIA
     Dosage: UNK
     Route: 065
     Dates: start: 20140918
  2. ESTRACE [Concomitant]
     Active Substance: ESTRADIOL
     Dosage: UNK ONCE A WEEK
     Route: 067
  3. ESTRACE [Concomitant]
     Active Substance: ESTRADIOL
     Indication: PRODUCT USED FOR UNKNOWN INDICATION
     Dosage: 0.5 G, EVERY 3 DAYS
     Route: 065
     Dates: start: 201403, end: 201409

REACTIONS (2)
  - Labelled drug-drug interaction medication error [Unknown]
  - Vaginal haemorrhage [Recovered/Resolved]

NARRATIVE: CASE EVENT DATE: 20140922
